FAERS Safety Report 5124444-8 (Version None)
Quarter: 2006Q4

REPORT INFORMATION
  Report Type: 
  Country: None (occurrence: None)
  Receive Date: 20060816
  Receipt Date: 20060621
  Transmission Date: 20070319
  Serious: No
  Sender: FDA-Public Use
  Company Number: US200606005050

PATIENT
  Age: 73 Year
  Sex: Male

DRUGS (2)
  1. CIALIS [Suspect]
     Indication: ERECTILE DYSFUNCTION
     Dosage: 20 MG, UNK, UNK
     Dates: start: 20050601
  2. LEVITRA  /GFR/(VARDENAFIL HYDROCHLORIDE) [Concomitant]

REACTIONS (1)
  - NASAL CONGESTION [None]
